FAERS Safety Report 10194218 (Version 2)
Quarter: 2014Q2

REPORT INFORMATION
  Report Type: Spontaneous
  Country: US (occurrence: US)
  Receive Date: 20140525
  Receipt Date: 20140627
  Transmission Date: 20141212
  Serious: Yes (Other)
  Sender: FDA-Public Use
  Company Number: US-ASTRAZENECA-2014SE33216

PATIENT
  Age: 56 Year
  Sex: Female
  Weight: 63 kg

DRUGS (13)
  1. SYMBICORT [Suspect]
     Indication: CHRONIC OBSTRUCTIVE PULMONARY DISEASE
     Dosage: 160/4.5, 1 PUFF DAILY
     Route: 055
     Dates: start: 201405, end: 20140512
  2. SYMBICORT [Suspect]
     Indication: CHRONIC OBSTRUCTIVE PULMONARY DISEASE
     Dosage: 160/4.5, 2 PUFFS BID
     Route: 055
     Dates: start: 201405, end: 20140512
  3. SYMBICORT [Suspect]
     Indication: CHRONIC OBSTRUCTIVE PULMONARY DISEASE
     Dosage: 160/4.5, 1 PUFF BID
     Route: 055
  4. LISINOPRIL [Suspect]
     Indication: HYPERTENSION
     Route: 048
  5. SPIRIVA HANDIHALER [Concomitant]
     Indication: CHRONIC OBSTRUCTIVE PULMONARY DISEASE
     Route: 055
  6. DIAZEPAM [Concomitant]
     Indication: ANXIETY
     Dosage: 5 MG EVERY DAY AS NEEDED
     Route: 048
  7. TEMAZEPAM [Concomitant]
     Indication: SLEEP DISORDER
     Dosage: 30 MG AT BEDTIME AS NEEDED, MAXIMUM OF 5 MONTHLY
     Route: 048
  8. CLOTRIMAZOLE [Concomitant]
  9. DICYCLOMINE HCL [Concomitant]
     Dosage: 10 MG EVERY SIX HOURS AS NEEDED
     Route: 048
  10. ADVAIR DISKUS [Concomitant]
     Dosage: 250-50 MCG/DOSE, 1 PUFF EVERY 12 HOURS
     Route: 055
  11. PROMETHAZINE HCL [Concomitant]
     Indication: NAUSEA
     Dosage: 25 MG EVERY 3 TO 4 HOURS AS NEEDED
     Route: 048
  12. PROMETHAZINE HCL [Concomitant]
     Indication: VOMITING
     Dosage: 25 MG EVERY 3 TO 4 HOURS AS NEEDED
     Route: 048
  13. IPRATROPIUM-ALBUTEROL [Concomitant]
     Dosage: 0.5 -2.5 (3) MG/3 ML, EVERY 4 HOURS AS NEEDED
     Route: 055

REACTIONS (23)
  - Thyroid neoplasm [Unknown]
  - Throat irritation [Not Recovered/Not Resolved]
  - Cough [Not Recovered/Not Resolved]
  - Increased bronchial secretion [Not Recovered/Not Resolved]
  - Dysphonia [Not Recovered/Not Resolved]
  - Dyspepsia [Not Recovered/Not Resolved]
  - Anxiety [Unknown]
  - Chronic obstructive pulmonary disease [Unknown]
  - Oropharyngeal pain [Unknown]
  - Headache [Unknown]
  - Insomnia [Unknown]
  - Irritable bowel syndrome [Unknown]
  - Migraine [Unknown]
  - Oral candidiasis [Unknown]
  - Atrophic vulvovaginitis [Unknown]
  - Anal pruritus [Unknown]
  - Sciatica [Unknown]
  - Rash [Unknown]
  - Dyspnoea [Unknown]
  - Chest pain [Unknown]
  - Wheezing [Recovered/Resolved]
  - Drug dose omission [Recovered/Resolved]
  - Intentional product misuse [Recovered/Resolved]
